FAERS Safety Report 8606740 (Version 2)
Quarter: 2013Q2

REPORT INFORMATION
  Report Type: Spontaneous
  Country: US (occurrence: US)
  Receive Date: 20120611
  Receipt Date: 20130617
  Transmission Date: 20140414
  Serious: Yes (Other)
  Sender: FDA-Public Use
  Company Number: US-ASTRAZENECA-2012SE35322

PATIENT
  Age: 52 Year
  Sex: Male

DRUGS (20)
  1. NEXIUM [Suspect]
     Indication: ULCER
     Route: 048
  2. NEXIUM [Suspect]
     Indication: GASTROOESOPHAGEAL REFLUX DISEASE
     Route: 048
  3. NEXIUM [Suspect]
     Indication: GASTROOESOPHAGEAL REFLUX DISEASE
     Route: 048
  4. NEXIUM [Suspect]
     Indication: ULCER
     Dosage: 2 X DAY AS PRESCRIBED
     Route: 048
     Dates: start: 2000
  5. NEXIUM [Suspect]
     Indication: GASTROOESOPHAGEAL REFLUX DISEASE
     Dosage: 2 X DAY AS PRESCRIBED
     Route: 048
     Dates: start: 2000
  6. NEXIUM [Suspect]
     Indication: GASTROOESOPHAGEAL REFLUX DISEASE
     Dosage: 2 X DAY AS PRESCRIBED
     Route: 048
     Dates: start: 2000
  7. PRILOSEC [Suspect]
     Indication: ULCER
     Route: 048
  8. PRILOSEC [Suspect]
     Indication: GASTROOESOPHAGEAL REFLUX DISEASE
     Route: 048
  9. PRILOSEC [Suspect]
     Indication: GASTROOESOPHAGEAL REFLUX DISEASE
     Route: 048
  10. PROTONIX [Concomitant]
     Indication: ULCER
  11. PROTONIX [Concomitant]
     Indication: GASTROOESOPHAGEAL REFLUX DISEASE
  12. PROTONIX [Concomitant]
     Indication: GASTROOESOPHAGEAL REFLUX DISEASE
  13. PREVACID [Concomitant]
     Indication: ULCER
  14. PREVACID [Concomitant]
     Indication: GASTROOESOPHAGEAL REFLUX DISEASE
  15. PREVACID [Concomitant]
     Indication: GASTROOESOPHAGEAL REFLUX DISEASE
  16. ACIPHEX [Concomitant]
     Indication: ULCER
  17. ACIPHEX [Concomitant]
     Indication: GASTROOESOPHAGEAL REFLUX DISEASE
  18. ACIPHEX [Concomitant]
     Indication: GASTROOESOPHAGEAL REFLUX DISEASE
  19. ZANTAC [Concomitant]
  20. HEART MEDICATION [Concomitant]

REACTIONS (17)
  - Convulsion [Unknown]
  - Osteoporosis [Unknown]
  - Multiple fractures [Unknown]
  - Wrist fracture [Unknown]
  - Thoracic vertebral fracture [Unknown]
  - Ankle fracture [Unknown]
  - Fractured coccyx [Unknown]
  - Foot fracture [Unknown]
  - Bone disorder [Unknown]
  - Bone pain [Unknown]
  - Angina pectoris [Unknown]
  - Arthritis [Unknown]
  - Cataract [Unknown]
  - Lung disorder [Unknown]
  - Bone density decreased [Unknown]
  - Androgen deficiency [Unknown]
  - Bone density decreased [Unknown]
